FAERS Safety Report 14280267 (Version 3)
Quarter: 2018Q1

REPORT INFORMATION
  Report Type: Spontaneous
  Country: US (occurrence: US)
  Receive Date: 20171212
  Receipt Date: 20180104
  Transmission Date: 20180508
  Serious: Yes (Hospitalization)
  Sender: FDA-Public Use
  Company Number: US-IMPAX LABORATORIES, INC-2017-IPXL-02970

PATIENT
  Age: 65 Year
  Sex: Male
  Weight: 93 kg

DRUGS (5)
  1. RYTARY [Suspect]
     Active Substance: CARBIDOPA\LEVODOPA
     Indication: PARKINSON^S DISEASE
     Dosage: 23.75/95 MG FOUR CAPSULE THREE TIMES A DAY
     Route: 048
     Dates: start: 20171002, end: 201710
  2. CELLCEPT [Concomitant]
     Active Substance: MYCOPHENOLATE MOFETIL\MYCOPHENOLATE MOFETIL HYDROCHLORIDE
     Indication: TRANSPLANT
     Dosage: 500 MG, UNK
     Route: 065
  3. PROGRAF [Concomitant]
     Active Substance: TACROLIMUS\TACROLIMUS ANHYDROUS
     Indication: TRANSPLANT
     Dosage: 1.5 MG, UNK
     Route: 065
  4. RYTARY [Suspect]
     Active Substance: CARBIDOPA\LEVODOPA
     Dosage: 23.75/95 MG, FOUR CAPSULES IN MORNING, FOUR CAPSULES IN AFTERNOON AND THREE IN EVENING
     Route: 048
     Dates: start: 201710, end: 201710
  5. RYTARY [Suspect]
     Active Substance: CARBIDOPA\LEVODOPA
     Dosage: 23.75/95 MG, FOUR IN MORNING, TWO IN AFTERNOON AND TWO IN EVENING
     Route: 048
     Dates: start: 20171006, end: 20171007

REACTIONS (4)
  - Psychotic disorder [Recovered/Resolved]
  - Asthenia [Recovered/Resolved]
  - Gait inability [Unknown]
  - Drug effect variable [Unknown]

NARRATIVE: CASE EVENT DATE: 201710
